FAERS Safety Report 24959705 (Version 1)
Quarter: 2025Q1

REPORT INFORMATION
  Report Type: Spontaneous
  Country: US (occurrence: None)
  Receive Date: 20250211
  Receipt Date: 20250211
  Transmission Date: 20250409
  Serious: Yes (Death)
  Sender: FDA-CTU
  Company Number: None

PATIENT
  Age: 72 Year
  Sex: Female

DRUGS (12)
  1. MYCOPHENOLIC ACID [Suspect]
     Active Substance: MYCOPHENOLIC ACID
     Indication: Renal transplant
     Dosage: FREQUENCY : TWICE A DAY;?
     Route: 048
     Dates: start: 20230418, end: 20250125
  2. TACROLIMUS [Concomitant]
     Active Substance: TACROLIMUS
     Indication: Renal transplant
     Dosage: FREQUENCY : TWICE A DAY;?
     Route: 048
     Dates: start: 20230517, end: 20250125
  3. Acetaminophen/Codeine #4 [Concomitant]
  4. ALBUTEROL SULFATE [Concomitant]
     Active Substance: ALBUTEROL SULFATE
  5. ATORVASTATIN [Concomitant]
     Active Substance: ATORVASTATIN
  6. FAMOTIDINE [Concomitant]
     Active Substance: FAMOTIDINE
  7. Folic Acid 1 mg [Concomitant]
  8. REVLIMID [Concomitant]
     Active Substance: LENALIDOMIDE
  9. GABAPENTIN [Concomitant]
     Active Substance: GABAPENTIN
  10. Budesonide 0.5mg Inhalation Solution [Concomitant]
  11. Ipratropium/Albuterol 0.5mg/3mg [Concomitant]
  12. LEVOTHYROXINE [Concomitant]
     Active Substance: LEVOTHYROXINE

REACTIONS (1)
  - Burning mouth syndrome [None]

NARRATIVE: CASE EVENT DATE: 20250125
